FAERS Safety Report 6046391-X (Version None)
Quarter: 2009Q1

REPORT INFORMATION
  Report Type: 
  Country: None (occurrence: None)
  Receive Date: 20090122
  Receipt Date: 20090113
  Transmission Date: 20090719
  Serious: Yes (Hospitalization)
  Sender: FDA-Public Use
  Company Number: US-BIOGENIDEC-2009BI001648

PATIENT
  Age: 60 Year
  Sex: Female

DRUGS (1)
  1. AVONEX [Suspect]
     Indication: MULTIPLE SCLEROSIS
     Route: 030
     Dates: start: 20031107

REACTIONS (5)
  - ABDOMINAL ABSCESS [None]
  - AMNESIA [None]
  - ESCHERICHIA INFECTION [None]
  - INTRA-ABDOMINAL HAEMORRHAGE [None]
  - THROMBOSIS [None]
